FAERS Safety Report 22223367 (Version 3)
Quarter: 2024Q4

REPORT INFORMATION
  Report Type: Spontaneous
  Country: US (occurrence: US)
  Receive Date: 20230418
  Receipt Date: 20241001
  Transmission Date: 20250115
  Serious: No
  Sender: NOVARTIS
  Company Number: US-002147023-NVSC2023US088274

PATIENT
  Age: 78 Year
  Sex: Female
  Weight: 65 kg

DRUGS (2)
  1. LEQVIO [Suspect]
     Active Substance: INCLISIRAN SODIUM
     Indication: Lipids
     Dosage: 284 MG, (ONE SINGLE DOSE) (INJECTION)
     Route: 058
     Dates: start: 202210
  2. LEQVIO [Suspect]
     Active Substance: INCLISIRAN SODIUM
     Dosage: UNK, (SECOND DOSE) (INJECTION)
     Route: 065
     Dates: start: 202301

REACTIONS (3)
  - Low density lipoprotein increased [Not Recovered/Not Resolved]
  - Headache [Unknown]
  - Influenza like illness [Unknown]

NARRATIVE: CASE EVENT DATE: 20230222
